FAERS Safety Report 10874367 (Version 13)
Quarter: 2016Q2

REPORT INFORMATION
  Report Type: Report from Study
  Country: US (occurrence: US)
  Receive Date: 20150227
  Receipt Date: 20160519
  Transmission Date: 20160815
  Serious: Yes (Death, Hospitalization, Other)
  Sender: FDA-Public Use
  Company Number: US-BAYER-2015-027344

PATIENT
  Age: 78 Year
  Sex: Female

DRUGS (4)
  1. NEXAVAR [Suspect]
     Active Substance: SORAFENIB
     Indication: HEPATIC CANCER
     Dosage: 200 MG, QD
     Route: 048
     Dates: start: 20150209
  2. NEXAVAR [Suspect]
     Active Substance: SORAFENIB
     Indication: HEPATIC CANCER
     Dosage: 200 MG, QD
     Route: 048
     Dates: end: 20160218
  3. NEXAVAR [Suspect]
     Active Substance: SORAFENIB
     Indication: HEPATIC CANCER
     Dosage: 200 MG, BID
     Route: 048
     Dates: start: 20150208
  4. NEXAVAR [Suspect]
     Active Substance: SORAFENIB
     Indication: HEPATIC CANCER
     Dosage: 200 MG, QD
     Route: 048
     Dates: end: 20160513

REACTIONS (15)
  - Feeding disorder [Recovering/Resolving]
  - Asthenia [Not Recovered/Not Resolved]
  - Hepatic pain [None]
  - Skin ulcer [None]
  - Pain in extremity [None]
  - Hypertension [None]
  - Malaise [None]
  - Gait disturbance [Not Recovered/Not Resolved]
  - Death [Fatal]
  - Abdominal pain [Unknown]
  - Dementia [Not Recovered/Not Resolved]
  - Dermatitis allergic [None]
  - Myocardial infarction [Not Recovered/Not Resolved]
  - Peripheral swelling [None]
  - Nausea [None]

NARRATIVE: CASE EVENT DATE: 20150219
